FAERS Safety Report 19640916 (Version 2)
Quarter: 2021Q3

REPORT INFORMATION
  Report Type: Spontaneous
  Country: US (occurrence: US)
  Receive Date: 20210730
  Receipt Date: 20210804
  Transmission Date: 20211014
  Serious: Yes (Other)
  Sender: FDA-Public Use
  Company Number: US-CELGENEUS-USA-20210705614

PATIENT
  Sex: Female
  Weight: 89 kg

DRUGS (2)
  1. REVLIMID [Suspect]
     Active Substance: LENALIDOMIDE
     Indication: PLASMA CELL MYELOMA
     Dosage: DOSE FOR 7DAYS AND 7 OFF
     Route: 048
     Dates: start: 202104
  2. REVLIMID [Suspect]
     Active Substance: LENALIDOMIDE
     Route: 048

REACTIONS (4)
  - Neuropathy peripheral [Unknown]
  - Alopecia [Unknown]
  - Diarrhoea [Unknown]
  - Contusion [Unknown]

NARRATIVE: CASE EVENT DATE: 2021
